FAERS Safety Report 4947921-9 (Version None)
Quarter: 2006Q1

REPORT INFORMATION
  Report Type: 
  Country: None (occurrence: None)
  Receive Date: 20060317
  Receipt Date: 20060317
  Transmission Date: 20060701
  Serious: Yes (Other)
  Sender: FDA-Public Use
  Company Number: None

PATIENT
  Age: 82 Year
  Sex: Female

DRUGS (5)
  1. CARAFATE [Suspect]
     Indication: BURNING SENSATION
     Dosage: 10ML FOUR TIMES DAILY
     Dates: start: 20060221, end: 20060225
  2. CARAFATE [Suspect]
     Indication: GASTROOESOPHAGEAL REFLUX DISEASE
     Dosage: 10ML FOUR TIMES DAILY
     Dates: start: 20060221, end: 20060225
  3. ZYRTEC [Concomitant]
  4. LASIX [Concomitant]
  5. KLONOPIN [Concomitant]

REACTIONS (3)
  - GASTROINTESTINAL PAIN [None]
  - NAUSEA [None]
  - THROAT IRRITATION [None]
